FAERS Safety Report 5273780-3 (Version None)
Quarter: 2007Q1

REPORT INFORMATION
  Report Type: 
  Country: None (occurrence: None)
  Receive Date: 20070323
  Receipt Date: 20070315
  Transmission Date: 20070707
  Serious: Yes (Disabling)
  Sender: FDA-Public Use
  Company Number: IT-AVENTIS-200621696GDDC

PATIENT
  Age: 63 Year
  Sex: Female

DRUGS (3)
  1. ARAVA [Suspect]
     Dates: start: 20060701, end: 20061031
  2. ARAVA [Suspect]
  3. CYCLOSPORINE [Concomitant]
     Dosage: DOSE: UNK
     Dates: end: 20060701

REACTIONS (8)
  - ALOPECIA [None]
  - DIARRHOEA [None]
  - EYE INFLAMMATION [None]
  - GASTRIC ULCER [None]
  - GASTRITIS [None]
  - HIRSUTISM [None]
  - STOMACH DISCOMFORT [None]
  - WEIGHT DECREASED [None]
